FAERS Safety Report 18072722 (Version 1)
Quarter: 2020Q3

REPORT INFORMATION
  Report Type: Spontaneous
  Country: US (occurrence: US)
  Receive Date: 20200727
  Receipt Date: 20200727
  Transmission Date: 20201103
  Serious: No
  Sender: FDA-Public Use
  Company Number: US-SA-2020SA189034

PATIENT

DRUGS (2)
  1. SELSUN BLUE [Suspect]
     Active Substance: SELENIUM SULFIDE
     Indication: DANDRUFF
  2. SELSUN BLUE [Suspect]
     Active Substance: SELENIUM SULFIDE
     Indication: DRY SKIN

REACTIONS (1)
  - Drug ineffective [Unknown]
